FAERS Safety Report 16766596 (Version 5)
Quarter: 2020Q3

REPORT INFORMATION
  Report Type: Spontaneous
  Country: US (occurrence: US)
  Receive Date: 20190903
  Receipt Date: 20200917
  Transmission Date: 20201102
  Serious: Yes (Other)
  Sender: FDA-Public Use
  Company Number: PHEH2019US036509

PATIENT
  Age: 29 Year
  Sex: Female

DRUGS (3)
  1. ONDANSETRON AUROBINDO [Suspect]
     Active Substance: ONDANSETRON HYDROCHLORIDE
     Indication: MORNING SICKNESS
     Dosage: 08 MG, QD
     Route: 048
     Dates: start: 20130426, end: 20130526
  2. ZOFRAN ODT [Suspect]
     Active Substance: ONDANSETRON HYDROCHLORIDE
     Indication: MORNING SICKNESS
     Route: 048
  3. ONDANSETRON TEVA [Suspect]
     Active Substance: ONDANSETRON
     Indication: MORNING SICKNESS
     Dosage: 08 MG, QD
     Route: 048
     Dates: start: 20130314, end: 20130605

REACTIONS (13)
  - Premature delivery [Unknown]
  - Maternal exposure during pregnancy [Unknown]
  - Emotional distress [Unknown]
  - Vaginal haemorrhage [Unknown]
  - Injury [Unknown]
  - Subchorionic haemorrhage [Unknown]
  - Tooth abscess [Unknown]
  - Pain in jaw [Unknown]
  - Hypokalaemia [Unknown]
  - Product use in unapproved indication [Unknown]
  - Abdominal pain lower [Unknown]
  - Tearfulness [Unknown]
  - Premature rupture of membranes [Unknown]

NARRATIVE: CASE EVENT DATE: 20130828
